FAERS Safety Report 17545666 (Version 5)
Quarter: 2020Q2

REPORT INFORMATION
  Report Type: Spontaneous
  Country: US (occurrence: US)
  Receive Date: 20200316
  Receipt Date: 20200604
  Transmission Date: 20200713
  Serious: Yes (Other)
  Sender: FDA-Public Use
  Company Number: US-PFIZER INC-2020112563

PATIENT
  Age: 62 Year
  Sex: Female

DRUGS (33)
  1. ALEVE [Concomitant]
     Active Substance: NAPROXEN SODIUM
     Dosage: 220 MG
  2. FAMOTIDINE. [Concomitant]
     Active Substance: FAMOTIDINE
     Dosage: 20 MG, UNK
  3. NEXIUM [Concomitant]
     Active Substance: ESOMEPRAZOLE MAGNESIUM
     Indication: DYSPEPSIA
     Dosage: 20 MG, UNK
  4. TESSALON [Concomitant]
     Active Substance: BENZONATATE
     Dosage: 100 MG, UNK
  5. ZINC. [Concomitant]
     Active Substance: ZINC
     Dosage: 30 MG, UNK
  6. IBRANCE [Suspect]
     Active Substance: PALBOCICLIB
     Dosage: 125 MG, CYCLIC (ONCE DAILY FOR 21 DAYS)
     Route: 048
  7. DICLOFENAC SODIUM. [Concomitant]
     Active Substance: DICLOFENAC SODIUM
     Dosage: UNK
  8. TRAMADOL HCL [Concomitant]
     Active Substance: TRAMADOL HYDROCHLORIDE
     Dosage: 50 MG, UNK
  9. IBRANCE [Suspect]
     Active Substance: PALBOCICLIB
     Dosage: 125 MG, CYCLIC (ONCE DAILY FOR 21 DAYS)
     Route: 048
  10. FASLODEX [Suspect]
     Active Substance: FULVESTRANT
     Dosage: 250 MG, UNK
  11. ADVIL COLD AND SINUS [Concomitant]
     Active Substance: IBUPROFEN\PSEUDOEPHEDRINE HYDROCHLORIDE
     Dosage: 200MG-3
  12. VITAMIN D3 [Concomitant]
     Active Substance: CHOLECALCIFEROL
     Dosage: 10 UG, UNK
  13. IRBESARTAN. [Concomitant]
     Active Substance: IRBESARTAN
     Dosage: UNK
  14. PATADAY [Concomitant]
     Active Substance: OLOPATADINE HYDROCHLORIDE
     Dosage: 0.2 %, UNK
  15. VITAMIN C [Concomitant]
     Active Substance: ASCORBIC ACID
     Dosage: 1000 MG, UNK
  16. TYLENOL [Concomitant]
     Active Substance: ACETAMINOPHEN
     Dosage: 325 MG, UNK
  17. IBRANCE [Suspect]
     Active Substance: PALBOCICLIB
     Dosage: 125 MG, CYCLIC (ONCE DAILY FOR 21 DAYS)
     Route: 048
  18. I-VITE [Concomitant]
     Dosage: 1000-60
  19. OPTI-FREE [Concomitant]
     Active Substance: PANCRELIPASE\TYROSINE
     Dosage: UNK
  20. XGEVA [Suspect]
     Active Substance: DENOSUMAB
     Dosage: UNK
  21. ALEVE [Concomitant]
     Active Substance: NAPROXEN SODIUM
     Dosage: 200 MG, UNK
  22. PREDNISOLONE ACETATE. [Concomitant]
     Active Substance: PREDNISOLONE ACETATE
     Dosage: 1 %, UNK
  23. VITAMIN B [Concomitant]
     Active Substance: VITAMIN B
     Dosage: UNK
  24. GERI-KOT [Concomitant]
     Active Substance: SENNOSIDES
     Dosage: 8.6 MG, UNK
  25. LORAZEPAM. [Concomitant]
     Active Substance: LORAZEPAM
     Dosage: UNK
  26. IBRANCE [Suspect]
     Active Substance: PALBOCICLIB
     Indication: BREAST CANCER FEMALE
     Dosage: 125 MG, CYCLIC (ONCE DAILY FOR 21 DAYS)
     Route: 048
  27. LORATADINE. [Concomitant]
     Active Substance: LORATADINE
     Dosage: 10 MG, UNK
  28. PROBIOTIC BLEND [Concomitant]
     Dosage: UNK
  29. CALCIUM [Concomitant]
     Active Substance: CALCIUM
     Dosage: 600 MG, UNK
  30. BYSTOLIC [Concomitant]
     Active Substance: NEBIVOLOL HYDROCHLORIDE
     Dosage: UNK
  31. MULTIVITAMINS [VITAMINS NOS] [Concomitant]
     Active Substance: VITAMINS
     Dosage: UNK
  32. GARLIC. [Concomitant]
     Active Substance: GARLIC
     Dosage: 500 MG, UNK
  33. MAGNESIUM [Concomitant]
     Active Substance: MAGNESIUM
     Dosage: 300 MG, UNK

REACTIONS (9)
  - Haemorrhoids [Unknown]
  - White blood cell count decreased [Unknown]
  - Dizziness [Unknown]
  - Alopecia [Unknown]
  - Pelvic pain [Unknown]
  - Anorectal discomfort [Unknown]
  - Hip fracture [Unknown]
  - Bone pain [Unknown]
  - Rectal fissure [Unknown]
